FAERS Safety Report 5372414-7 (Version None)
Quarter: 2007Q2

REPORT INFORMATION
  Report Type: 
  Country: None (occurrence: None)
  Receive Date: 20070627
  Receipt Date: 20070625
  Transmission Date: 20071010
  Serious: Yes (Other)
  Sender: FDA-Public Use
  Company Number: HQWYE790126JUN07

PATIENT
  Age: 54 Year
  Sex: Male
  Weight: 99.88 kg

DRUGS (1)
  1. ADVIL [Suspect]
     Indication: ARTHRITIS
     Route: 048
     Dates: start: 20070623, end: 20070623

REACTIONS (4)
  - ERYTHEMA [None]
  - HYPERSENSITIVITY [None]
  - LOSS OF CONSCIOUSNESS [None]
  - PRURITUS [None]
